FAERS Safety Report 17168584 (Version 6)
Quarter: 2022Q3

REPORT INFORMATION
  Report Type: Report from Study
  Country: DE (occurrence: DE)
  Receive Date: 20191218
  Receipt Date: 20220913
  Transmission Date: 20221027
  Serious: Yes (Death, Other)
  Sender: FDA-Public Use
  Company Number: None

PATIENT
  Age: 58 Year
  Sex: Male

DRUGS (10)
  1. ETOPOSIDE [Suspect]
     Active Substance: ETOPOSIDE
     Indication: Premedication
     Dosage: 280 MG, QD
     Route: 042
     Dates: start: 20190914, end: 20190917
  2. CYTARABINE [Suspect]
     Active Substance: CYTARABINE
     Indication: Premedication
     Dosage: 760 MG, QD
     Route: 042
     Dates: start: 20190914, end: 20190917
  3. PLERIXAFOR [Suspect]
     Active Substance: PLERIXAFOR
     Indication: Non-Hodgkin^s lymphoma
     Route: 058
     Dates: start: 20190722, end: 20190723
  4. THIOTEPA [Suspect]
     Active Substance: THIOTEPA
     Indication: Premedication
     Dosage: 560 MG, QD
     Route: 042
     Dates: start: 20190913, end: 20190913
  5. MELPHALAN [Suspect]
     Active Substance: MELPHALAN
     Indication: Premedication
     Dosage: 260 MG, QD
     Route: 042
     Dates: start: 20190918, end: 20190918
  6. ATORVASTATIN CALCIUM [Concomitant]
     Active Substance: ATORVASTATIN CALCIUM
     Indication: Premedication
     Dosage: 21.65 MG, QD
     Route: 048
     Dates: end: 20191001
  7. VALSARTAN [Concomitant]
     Active Substance: VALSARTAN
     Indication: Premedication
     Dosage: 160 MG, BID
     Route: 048
     Dates: end: 20191001
  8. BISOPROLOL [Concomitant]
     Active Substance: BISOPROLOL
     Indication: Premedication
     Dosage: 2.5 MG, BID
     Route: 048
     Dates: end: 20191001
  9. AMOXICILLIN [Concomitant]
     Active Substance: AMOXICILLIN
     Dosage: 500 MG, TID
     Route: 048
  10. MAGNESIUM [Concomitant]
     Active Substance: MAGNESIUM
     Indication: Prophylaxis
     Dosage: 250 MG, QD
     Route: 048
     Dates: start: 20190708, end: 20190922

REACTIONS (3)
  - Neutropenic sepsis [Fatal]
  - Multiple organ dysfunction syndrome [Fatal]
  - Cytomegalovirus infection reactivation [Unknown]

NARRATIVE: CASE EVENT DATE: 20190920
